FAERS Safety Report 9341573 (Version 2)
Quarter: 2013Q3

REPORT INFORMATION
  Report Type: Spontaneous
  Country: SZ (occurrence: None)
  Receive Date: 20130530
  Receipt Date: 20130725
  Transmission Date: 20140515
  Serious: Yes (Other)
  Sender: FDA-Public Use
  Company Number: 2013036168

PATIENT
  Age: 48 Year
  Sex: Female

DRUGS (1)
  1. FACTOR XIII [Suspect]
     Indication: INFUSION
     Route: 042
     Dates: start: 20120802, end: 20120802

REACTIONS (2)
  - Deep vein thrombosis [None]
  - Pulmonary embolism [None]
